FAERS Safety Report 6335844-2 (Version None)
Quarter: 2009Q3

REPORT INFORMATION
  Report Type: 
  Country: None (occurrence: None)
  Receive Date: 20090828
  Receipt Date: 20090816
  Transmission Date: 20100115
  Serious: Yes (Death, Hospitalization)
  Sender: FDA-Public Use
  Company Number: A-US2009-26956

PATIENT
  Age: 66 Year
  Sex: Female

DRUGS (1)
  1. VENTAVIS [Suspect]
     Indication: PULMONARY HYPERTENSION
     Dosage: NASAL
     Route: 045
     Dates: start: 20090718, end: 20090721

REACTIONS (1)
  - CEREBRAL HAEMORRHAGE [None]
